FAERS Safety Report 21795955 (Version 2)
Quarter: 2023Q1

REPORT INFORMATION
  Report Type: Spontaneous
  Country: PL (occurrence: PL)
  Receive Date: 20221229
  Receipt Date: 20230111
  Transmission Date: 20230417
  Serious: Yes (Hospitalization)
  Sender: FDA-Public Use
  Company Number: PL-TEVA-2022-PL-2840280

PATIENT
  Age: 74 Year

DRUGS (4)
  1. CYCLOSPORINE [Suspect]
     Active Substance: CYCLOSPORINE
     Indication: Immunosuppressant drug therapy
     Route: 065
  2. AZATHIOPRINE [Suspect]
     Active Substance: AZATHIOPRINE
     Indication: Immunosuppressant drug therapy
     Route: 065
     Dates: end: 2021
  3. LENALIDOMIDE [Suspect]
     Active Substance: LENALIDOMIDE
     Indication: Plasma cell myeloma
     Route: 065
     Dates: start: 2019, end: 2021
  4. ENTECAVIR [Concomitant]
     Active Substance: ENTECAVIR
     Indication: Hepatitis B
     Route: 065

REACTIONS (4)
  - Cytomegalovirus chorioretinitis [Recovering/Resolving]
  - Retinal degeneration [Not Recovered/Not Resolved]
  - Optic nerve disorder [Unknown]
  - Vascular occlusion [Unknown]

NARRATIVE: CASE EVENT DATE: 20200101
